FAERS Safety Report 6362044-2 (Version None)
Quarter: 2009Q3

REPORT INFORMATION
  Report Type: 
  Country: None (occurrence: None)
  Receive Date: 20090918
  Receipt Date: 20090917
  Transmission Date: 20100115
  Serious: Yes (Life-Threatening)
  Sender: FDA-Public Use
  Company Number: GB-WYE-G04455909

PATIENT
  Sex: Male

DRUGS (2)
  1. GEMTUZUMAB OZOGAMICIN [Suspect]
     Indication: ACUTE MYELOID LEUKAEMIA
     Dosage: UNKNOWN
     Dates: start: 20090916
  2. ARA-C [Concomitant]
     Dosage: UNKNOWN
     Dates: start: 20090916

REACTIONS (4)
  - HYPOTENSION [None]
  - MALAISE [None]
  - PYREXIA [None]
  - TACHYPNOEA [None]
